FAERS Safety Report 11135177 (Version 1)
Quarter: 2015Q2

REPORT INFORMATION
  Report Type: Spontaneous
  Country: GB (occurrence: GB)
  Receive Date: 20150525
  Receipt Date: 20150525
  Transmission Date: 20150821
  Serious: Yes (Hospitalization)
  Sender: FDA-Public Use
  Company Number: US-ASTRAZENECA-2015SE51109

PATIENT
  Age: 70 Year
  Sex: Female

DRUGS (7)
  1. AMIAS [Suspect]
     Active Substance: CANDESARTAN CILEXETIL
     Indication: PRODUCT USED FOR UNKNOWN INDICATION
     Route: 048
     Dates: start: 20150305
  2. ATORVASTATIN [Concomitant]
     Active Substance: ATORVASTATIN
     Route: 048
     Dates: start: 20141212
  3. VISCOTEARS [Concomitant]
     Active Substance: CARBOMER
     Route: 061
  4. FOLIC ACID. [Concomitant]
     Active Substance: FOLIC ACID
     Route: 048
  5. LACRI-LUBE [Concomitant]
     Route: 061
  6. CLOPIDOGREL [Concomitant]
     Active Substance: CLOPIDOGREL BISULFATE
     Route: 048
     Dates: start: 20150127
  7. LYMECYCLINE [Concomitant]
     Active Substance: LYMECYCLINE
     Route: 048

REACTIONS (2)
  - Hyponatraemia [Unknown]
  - Confusional state [Unknown]

NARRATIVE: CASE EVENT DATE: 20150326
